FAERS Safety Report 7443311-8 (Version None)
Quarter: 2011Q2

REPORT INFORMATION
  Report Type: 
  Country: None (occurrence: None)
  Receive Date: 20110428
  Receipt Date: 20110421
  Transmission Date: 20111010
  Serious: No
  Sender: FDA-Public Use
  Company Number: IE-PFIZER INC-2011040297

PATIENT
  Sex: Female

DRUGS (2)
  1. CYCLOSPORINE [Interacting]
     Indication: APLASTIC ANAEMIA
  2. VORICONAZOLE [Suspect]
     Indication: INFECTION

REACTIONS (2)
  - DRUG INTERACTION [None]
  - DRUG LEVEL INCREASED [None]
